FAERS Safety Report 5479216-1 (Version None)
Quarter: 2007Q4

REPORT INFORMATION
  Report Type: 
  Country: None (occurrence: None)
  Receive Date: 20071008
  Receipt Date: 20070927
  Transmission Date: 20080405
  Serious: Yes (Hospitalization, Other)
  Sender: FDA-Public Use
  Company Number: PHMT2007CA01821

PATIENT
  Age: 52 Year
  Sex: Female
  Weight: 71.655 kg

DRUGS (4)
  1. CLOZARIL [Suspect]
     Indication: TORTICOLLIS
     Dosage: 1/4  TAB 25 MG, QHS
     Route: 048
     Dates: start: 20070716
  2. CLOZARIL [Suspect]
     Dosage: DOSE INCREASED TO HALF 25 MG TABLET
     Route: 048
     Dates: end: 20070723
  3. RIVATRIL [Concomitant]
     Dosage: 0.5, TID SINCE A FEW MONTHS
  4. PAXIL [Concomitant]
     Dosage: 20, SINCE A FEW MONTHS

REACTIONS (3)
  - IDEAS OF REFERENCE [None]
  - PSYCHOTIC DISORDER [None]
  - SOMNOLENCE [None]
